FAERS Safety Report 5374894-X (Version None)
Quarter: 2007Q2

REPORT INFORMATION
  Report Type: 
  Country: None (occurrence: None)
  Receive Date: 20070627
  Receipt Date: 20070627
  Transmission Date: 20071010
  Serious: No
  Sender: FDA-Public Use
  Company Number: None

PATIENT
  Age: 8 Year
  Sex: Male
  Weight: 21.5 kg

DRUGS (10)
  1. AMBISOME [Suspect]
     Indication: FEBRILE NEUTROPENIA
     Dosage: 62 MG IV
     Route: 042
     Dates: start: 20061026
  2. MEROPENEM [Concomitant]
  3. LIDOBENALOX [Concomitant]
  4. DOCUSATE/SENNA [Concomitant]
  5. METRONIDAZOLE [Concomitant]
  6. OXYCODONE HCL [Concomitant]
  7. CITALOPRAM HYDROBROMIDE [Concomitant]
  8. SARCOMA FILGRASTIM [Concomitant]
  9. ACETAMINOPHEN [Concomitant]
  10. DIPHENHYDRAMINE HCL [Concomitant]

REACTIONS (5)
  - COUGH [None]
  - DYSPNOEA [None]
  - FLUSHING [None]
  - INFUSION RELATED REACTION [None]
  - LIP SWELLING [None]
